FAERS Safety Report 12766933 (Version 1)
Quarter: 2016Q3

REPORT INFORMATION
  Report Type: Spontaneous
  Country: US (occurrence: US)
  Receive Date: 20160921
  Receipt Date: 20160921
  Transmission Date: 20161109
  Serious: Yes (Death)
  Sender: FDA-Public Use
  Company Number: None

PATIENT
  Sex: Male
  Weight: 63.5 kg

DRUGS (1)
  1. COMFORT SHIELD BARRIER [Suspect]
     Active Substance: DIMETHICONE
     Indication: INCONTINENCE
     Dosage: EVERY FEW HOURS APPLIED TO A SURFACE, USUALLY THE SKIN
     Route: 061

REACTIONS (8)
  - Asthenia [None]
  - Lung infection [None]
  - Skin infection [None]
  - Product contamination microbial [None]
  - Product use issue [None]
  - Burkholderia cepacia complex infection [None]
  - Urinary tract infection [None]
  - Sepsis [None]
